FAERS Safety Report 8128465-2 (Version None)
Quarter: 2012Q1

REPORT INFORMATION
  Report Type: 
  Country: None (occurrence: None)
  Receive Date: 20120210
  Receipt Date: 20120130
  Transmission Date: 20120608
  Serious: Yes (Hospitalization)
  Sender: FDA-Public Use
  Company Number: DK-ROCHE-1032677

PATIENT

DRUGS (1)
  1. MABTHERA [Suspect]
     Indication: SJOGREN'S SYNDROME

REACTIONS (3)
  - UNEVALUABLE EVENT [None]
  - CHEST PAIN [None]
  - ACUTE MYOCARDIAL INFARCTION [None]
